FAERS Safety Report 10582133 (Version 3)
Quarter: 2016Q1

REPORT INFORMATION
  Report Type: Spontaneous
  Country: US (occurrence: US)
  Receive Date: 20141113
  Receipt Date: 20160324
  Transmission Date: 20160525
  Serious: Yes (Other)
  Sender: FDA-Public Use
  Company Number: US-JNJFOC-20141104693

PATIENT

DRUGS (4)
  1. SIMEPREVIR [Suspect]
     Active Substance: SIMEPREVIR
     Indication: CHRONIC HEPATITIS C
     Route: 065
  2. SOFOSBUVIR [Suspect]
     Active Substance: SOFOSBUVIR
     Indication: CHRONIC HEPATITIS C
     Route: 065
  3. RIBAVIRIN. [Suspect]
     Active Substance: RIBAVIRIN
     Indication: CHRONIC HEPATITIS C
     Route: 065
  4. RIBAVIRIN. [Suspect]
     Active Substance: RIBAVIRIN
     Indication: CHRONIC HEPATITIS C
     Route: 065

REACTIONS (17)
  - Renal failure [Unknown]
  - Insomnia [Unknown]
  - Off label use [Unknown]
  - Anaemia [Unknown]
  - Blood bilirubin increased [Unknown]
  - Pruritus [Unknown]
  - Hypokalaemia [Unknown]
  - Product use issue [Unknown]
  - Photosensitivity reaction [Unknown]
  - Hepatitis C [Unknown]
  - Fatigue [Unknown]
  - Headache [Unknown]
  - Nausea [Unknown]
  - Remission not achieved [Unknown]
  - Dyspnoea [Unknown]
  - Pancreatitis [Unknown]
  - Rash [Unknown]
